FAERS Safety Report 19111221 (Version 1)
Quarter: 2021Q2

REPORT INFORMATION
  Report Type: Spontaneous
  Country: US (occurrence: US)
  Receive Date: 20210408
  Receipt Date: 20210408
  Transmission Date: 20210717
  Serious: No
  Sender: FDA-Public Use
  Company Number: US-EMERGENT BIOSOLUTIONS,-21000030SP

PATIENT
  Sex: Female

DRUGS (2)
  1. MOMETASONE [Concomitant]
     Active Substance: MOMETASONE
     Indication: NASAL DISORDER
     Dosage: UNK, BID
     Route: 045
  2. NARCAN [Suspect]
     Active Substance: NALOXONE HYDROCHLORIDE
     Indication: OVERDOSE
     Dosage: UNK
     Route: 045

REACTIONS (3)
  - Vomiting [Recovered/Resolved]
  - Unintentional use for unapproved indication [Unknown]
  - Burning sensation [Recovered/Resolved]
